FAERS Safety Report 6566886-X (Version None)
Quarter: 2010Q1

REPORT INFORMATION
  Report Type: 
  Country: None (occurrence: None)
  Receive Date: 20100202
  Receipt Date: 20100128
  Transmission Date: 20100710
  Serious: Yes (Death, Hospitalization)
  Sender: FDA-Public Use
  Company Number: Z0002113C

PATIENT
  Sex: Female
  Weight: 39.8 kg

DRUGS (4)
  1. LAPATINIB [Suspect]
     Indication: GASTRIC CANCER
     Dosage: 1500MG PER DAY
     Route: 048
     Dates: start: 20091021
  2. PACLITAXEL [Suspect]
     Indication: GASTRIC CANCER
     Dosage: 80MGM2 CYCLIC
     Route: 042
     Dates: start: 20091021
  3. CEFUROXIME [Concomitant]
     Indication: PROPHYLAXIS
     Dosage: 1500MG THREE TIMES PER DAY
     Route: 042
     Dates: start: 20091217
  4. DEXTROSE 5% [Concomitant]
     Dosage: 500MGML PER DAY
     Route: 042
     Dates: start: 20091217

REACTIONS (1)
  - DECREASED APPETITE [None]
